FAERS Safety Report 4643823-6 (Version None)
Quarter: 2005Q2

REPORT INFORMATION
  Report Type: 
  Country: None (occurrence: None)
  Receive Date: 20050422
  Receipt Date: 20050422
  Transmission Date: 20051028
  Serious: Yes (Other)
  Sender: FDA-Public Use
  Company Number: None

PATIENT
  Age: 28 Year
  Sex: Male
  Weight: 81.6 kg

DRUGS (2)
  1. DOXYCYCLINE [Suspect]
  2. SIMVASTATIN [Concomitant]

REACTIONS (2)
  - NAUSEA [None]
  - VOMITING [None]
